FAERS Safety Report 10093149 (Version 1)
Quarter: 2014Q2

REPORT INFORMATION
  Report Type: Spontaneous
  Country: US (occurrence: US)
  Receive Date: 20140421
  Receipt Date: 20140421
  Transmission Date: 20141212
  Serious: No
  Sender: FDA-Public Use
  Company Number: US-SANOFI-AVENTIS-2013SA053679

PATIENT
  Sex: Female

DRUGS (5)
  1. ALLEGRA [Suspect]
     Route: 065
  2. KEPPRA [Concomitant]
  3. CARBAMAZEPINE [Concomitant]
  4. TEGRETOL [Concomitant]
     Dosage: FREQUENCY- 6 TIMES A DAY
  5. LEVOXYL [Concomitant]

REACTIONS (2)
  - Somnolence [Unknown]
  - Feeling abnormal [Unknown]
